FAERS Safety Report 7814869-1 (Version None)
Quarter: 2011Q4

REPORT INFORMATION
  Report Type: 
  Country: None (occurrence: None)
  Receive Date: 20111013
  Receipt Date: 20111013
  Transmission Date: 20120403
  Serious: Yes (Life-Threatening, Hospitalization)
  Sender: FDA-Public Use
  Company Number: None

PATIENT
  Sex: Female
  Weight: 54.4316 kg

DRUGS (1)
  1. CLINDAMYCIN [Suspect]
     Indication: TOOTH ABSCESS
     Dosage: 150 ML EVERY 6 HR MOUTH
     Route: 048
     Dates: start: 20110803, end: 20110811

REACTIONS (3)
  - DIARRHOEA [None]
  - GASTROINTESTINAL PAIN [None]
  - MALAISE [None]
